FAERS Safety Report 4451906-9 (Version None)
Quarter: 2004Q3

REPORT INFORMATION
  Report Type: 
  Country: None (occurrence: None)
  Receive Date: 20040917
  Receipt Date: 20040908
  Transmission Date: 20050211
  Serious: Yes (Other)
  Sender: FDA-Public Use
  Company Number: US-JNJFOC-20040902529

PATIENT
  Sex: Male
  Weight: 69.85 kg

DRUGS (5)
  1. REMICADE [Suspect]
     Indication: CROHN'S DISEASE
     Route: 042
  2. CENTROID [Concomitant]
  3. CENTROID [Concomitant]
  4. ASACOL [Concomitant]
     Indication: CROHN'S DISEASE
  5. 6MP [Concomitant]
     Indication: CROHN'S DISEASE

REACTIONS (1)
  - GLIOBLASTOMA MULTIFORME [None]
